FAERS Safety Report 6801530-5 (Version None)
Quarter: 2010Q2

REPORT INFORMATION
  Report Type: 
  Country: None (occurrence: None)
  Receive Date: 20100629
  Receipt Date: 20100521
  Transmission Date: 20101027
  Serious: Yes (Death, Other)
  Sender: FDA-Public Use
  Company Number: US-BAXTER-2009BH003454

PATIENT
  Age: 47 Year
  Sex: Male
  Weight: 92 kg

DRUGS (65)
  1. HEPARIN SODIUM [Suspect]
     Indication: STENT PLACEMENT
     Route: 065
     Dates: start: 20080309, end: 20080309
  2. HEPARIN SODIUM [Suspect]
     Indication: CATHETERISATION CARDIAC
     Route: 065
     Dates: start: 20080309, end: 20080309
  3. HEPARIN SODIUM [Suspect]
     Indication: ANGIOPLASTY
     Route: 065
     Dates: start: 20080309, end: 20080309
  4. HEPARIN SODIUM [Suspect]
     Route: 040
     Dates: start: 20080309, end: 20080309
  5. HEPARIN SODIUM [Suspect]
     Route: 040
     Dates: start: 20080309, end: 20080309
  6. HEPARIN SODIUM [Suspect]
     Route: 040
     Dates: start: 20080309, end: 20080309
  7. HEPARIN SODIUM [Suspect]
     Route: 040
     Dates: start: 20080309, end: 20080309
  8. HEPARIN SODIUM [Suspect]
     Route: 040
     Dates: start: 20080309, end: 20080309
  9. HEPARIN SODIUM [Suspect]
     Route: 040
     Dates: start: 20080309, end: 20080309
  10. HEPARIN SODIUM [Suspect]
     Route: 040
     Dates: start: 20080311, end: 20080311
  11. HEPARIN SODIUM [Suspect]
     Route: 040
     Dates: start: 20080311, end: 20080311
  12. HEPARIN SODIUM [Suspect]
     Route: 040
     Dates: start: 20080311, end: 20080311
  13. HEPARIN SODIUM [Suspect]
     Route: 040
     Dates: start: 20080311, end: 20080311
  14. HEPARIN SODIUM [Suspect]
     Route: 040
     Dates: start: 20080311, end: 20080311
  15. HEPARIN SODIUM [Suspect]
     Route: 040
     Dates: start: 20080311, end: 20080311
  16. HEPARIN SODIUM [Suspect]
     Route: 040
     Dates: start: 20080313, end: 20080313
  17. HEPARIN SODIUM [Suspect]
     Route: 040
     Dates: start: 20080313, end: 20080313
  18. HEPARIN SODIUM [Suspect]
     Route: 040
     Dates: start: 20080313, end: 20080313
  19. HEPARIN SODIUM 1,000 UNITS AND SODIUM CHLORIDE 0.9% [Suspect]
     Indication: INTRAVENOUS CATHETER MANAGEMENT
     Route: 065
     Dates: start: 20080309, end: 20080309
  20. HEPARIN SODIUM 1,000 UNITS AND SODIUM CHLORIDE 0.9% [Suspect]
     Route: 065
     Dates: start: 20080309, end: 20080309
  21. HEPARIN SODIUM 1,000 UNITS AND SODIUM CHLORIDE 0.9% [Suspect]
     Indication: CARDIAC OPERATION
     Route: 065
     Dates: start: 20080309, end: 20080309
  22. HEPARIN SODIUM 1,000 UNITS AND SODIUM CHLORIDE 0.9% [Suspect]
     Indication: STENT PLACEMENT
     Route: 065
     Dates: start: 20080309, end: 20080309
  23. HEPARIN SODIUM 1,000 UNITS AND SODIUM CHLORIDE 0.9% [Suspect]
     Route: 065
     Dates: start: 20080309, end: 20080309
  24. HEPARIN SODIUM 1,000 UNITS AND SODIUM CHLORIDE 0.9% [Suspect]
     Indication: CATHETERISATION CARDIAC
     Route: 065
     Dates: start: 20080309, end: 20080309
  25. HEPARIN SODIUM 1,000 UNITS AND SODIUM CHLORIDE 0.9% [Suspect]
     Indication: ANGIOPLASTY
     Route: 065
     Dates: start: 20080309, end: 20080309
  26. HEPARIN SODIUM 1,000 UNITS AND SODIUM CHLORIDE 0.9% [Suspect]
     Route: 042
     Dates: start: 20080311, end: 20080311
  27. HEPARIN SODIUM 1,000 UNITS AND SODIUM CHLORIDE 0.9% [Suspect]
     Route: 042
     Dates: start: 20080311, end: 20080311
  28. HEPARIN SODIUM 1,000 UNITS AND SODIUM CHLORIDE 0.9% [Suspect]
     Route: 042
     Dates: start: 20080311, end: 20080311
  29. HEPARIN SODIUM 1,000 UNITS AND SODIUM CHLORIDE 0.9% [Suspect]
     Route: 042
     Dates: start: 20080311, end: 20080311
  30. HEPARIN SODIUM 1,000 UNITS AND SODIUM CHLORIDE 0.9% [Suspect]
     Route: 042
     Dates: start: 20080311, end: 20080311
  31. HEPARIN SODIUM 1,000 UNITS AND SODIUM CHLORIDE 0.9% [Suspect]
     Route: 042
     Dates: start: 20080311, end: 20080311
  32. HEPARIN SODIUM 1,000 UNITS AND SODIUM CHLORIDE 0.9% [Suspect]
     Route: 042
     Dates: start: 20080311, end: 20080311
  33. HEPARIN SODIUM 1,000 UNITS AND SODIUM CHLORIDE 0.9% [Suspect]
     Route: 042
     Dates: start: 20080311, end: 20080313
  34. HEPARIN SODIUM 1,000 UNITS AND SODIUM CHLORIDE 0.9% [Suspect]
     Route: 042
     Dates: start: 20080311, end: 20080313
  35. HEPARIN SODIUM 1,000 UNITS AND SODIUM CHLORIDE 0.9% [Suspect]
     Route: 042
     Dates: start: 20080311, end: 20080313
  36. HEPARIN SODIUM 1,000 UNITS AND SODIUM CHLORIDE 0.9% [Suspect]
     Route: 042
     Dates: start: 20080311, end: 20080313
  37. HEPARIN SODIUM 1,000 UNITS AND SODIUM CHLORIDE 0.9% [Suspect]
     Route: 042
     Dates: start: 20080311, end: 20080313
  38. HEPARIN SODIUM 1,000 UNITS AND SODIUM CHLORIDE 0.9% [Suspect]
     Route: 042
     Dates: start: 20080311, end: 20080313
  39. HEPARIN SODIUM 1,000 UNITS AND SODIUM CHLORIDE 0.9% [Suspect]
     Route: 042
     Dates: start: 20080311, end: 20080313
  40. HEPARIN SODIUM 1,000 UNITS AND SODIUM CHLORIDE 0.9% [Suspect]
     Route: 042
     Dates: start: 20080313, end: 20080313
  41. HEPARIN SODIUM 1,000 UNITS AND SODIUM CHLORIDE 0.9% [Suspect]
     Route: 042
     Dates: start: 20080313, end: 20080313
  42. HEPARIN SODIUM 1,000 UNITS AND SODIUM CHLORIDE 0.9% [Suspect]
     Route: 042
     Dates: start: 20080313, end: 20080313
  43. HEPARIN SODIUM 1,000 UNITS AND SODIUM CHLORIDE 0.9% [Suspect]
     Route: 042
     Dates: start: 20080313, end: 20080313
  44. HEPARIN SODIUM 1,000 UNITS AND SODIUM CHLORIDE 0.9% [Suspect]
     Route: 042
     Dates: start: 20080313, end: 20080313
  45. HEPARIN SODIUM 1,000 UNITS AND SODIUM CHLORIDE 0.9% [Suspect]
     Route: 042
     Dates: start: 20080313, end: 20080313
  46. HEPARIN SODIUM 1,000 UNITS AND SODIUM CHLORIDE 0.9% [Suspect]
     Route: 042
     Dates: start: 20080313, end: 20080313
  47. HEPARIN SODIUM 1,000 UNITS AND SODIUM CHLORIDE 0.9% [Suspect]
     Route: 042
     Dates: start: 20080313, end: 20080315
  48. HEPARIN SODIUM 1,000 UNITS AND SODIUM CHLORIDE 0.9% [Suspect]
     Route: 042
     Dates: start: 20080313, end: 20080315
  49. HEPARIN SODIUM 1,000 UNITS AND SODIUM CHLORIDE 0.9% [Suspect]
     Route: 042
     Dates: start: 20080313, end: 20080315
  50. HEPARIN SODIUM 1,000 UNITS AND SODIUM CHLORIDE 0.9% [Suspect]
     Route: 042
     Dates: start: 20080313, end: 20080315
  51. HEPARIN SODIUM 1,000 UNITS AND SODIUM CHLORIDE 0.9% [Suspect]
     Route: 042
     Dates: start: 20080313, end: 20080315
  52. HEPARIN SODIUM 1,000 UNITS AND SODIUM CHLORIDE 0.9% [Suspect]
     Route: 042
     Dates: start: 20080313, end: 20080315
  53. HEPARIN SODIUM 1,000 UNITS AND SODIUM CHLORIDE 0.9% [Suspect]
     Route: 042
     Dates: start: 20080313, end: 20080315
  54. ASPIRIN [Suspect]
     Indication: DRUG USE FOR UNKNOWN INDICATION
     Route: 065
     Dates: start: 20080309
  55. ASPIRIN [Concomitant]
     Indication: DRUG USE FOR UNKNOWN INDICATION
     Route: 065
  56. FISH OIL [Concomitant]
     Indication: DRUG USE FOR UNKNOWN INDICATION
     Route: 065
  57. PRILOSEC [Concomitant]
     Indication: DRUG USE FOR UNKNOWN INDICATION
     Route: 065
  58. LOPRESSOR [Concomitant]
     Indication: DRUG USE FOR UNKNOWN INDICATION
     Route: 042
  59. NITROSTAT [Concomitant]
     Indication: DRUG USE FOR UNKNOWN INDICATION
     Route: 060
  60. NITROGLYCERIN [Concomitant]
     Indication: DRUG USE FOR UNKNOWN INDICATION
     Route: 042
  61. NIACIN [Concomitant]
     Indication: DRUG USE FOR UNKNOWN INDICATION
     Route: 048
  62. MULTI-VITAMINS [Concomitant]
     Indication: DRUG USE FOR UNKNOWN INDICATION
     Route: 065
  63. VITAMIN B COMPLEX CAP [Concomitant]
     Indication: DRUG USE FOR UNKNOWN INDICATION
     Route: 065
  64. GLUCOSAMINE COMPLEX [Concomitant]
     Indication: DRUG USE FOR UNKNOWN INDICATION
     Route: 065
  65. GINSENG [Concomitant]
     Indication: DRUG USE FOR UNKNOWN INDICATION
     Route: 065

REACTIONS (19)
  - ACUTE RESPIRATORY DISTRESS SYNDROME [None]
  - BLOOD PRESSURE DECREASED [None]
  - BRADYCARDIA [None]
  - CARDIOGENIC SHOCK [None]
  - CORONARY ARTERY DISEASE [None]
  - HAEMORRHAGE [None]
  - HEPATIC FUNCTION ABNORMAL [None]
  - HYPOTENSION [None]
  - HYPOXIA [None]
  - ISCHAEMIC HEPATITIS [None]
  - MULTI-ORGAN FAILURE [None]
  - MYOCARDIAL INFARCTION [None]
  - PNEUMONIA ASPIRATION [None]
  - PULMONARY OEDEMA [None]
  - RENAL FAILURE ACUTE [None]
  - RESPIRATORY FAILURE [None]
  - SEPSIS [None]
  - SHOCK [None]
  - VOMITING [None]
